FAERS Safety Report 6602234-4 (Version None)
Quarter: 2010Q1

REPORT INFORMATION
  Report Type: 
  Country: None (occurrence: None)
  Receive Date: 20100225
  Receipt Date: 20100218
  Transmission Date: 20100710
  Serious: Yes (Other)
  Sender: FDA-Public Use
  Company Number: US-PURDUE-USA-2010-0042318

PATIENT
  Sex: Male

DRUGS (1)
  1. OXYCONTIN [Suspect]
     Indication: PAIN
     Dosage: 60 MG, TID

REACTIONS (4)
  - AMNESIA [None]
  - BRADYPHRENIA [None]
  - HEADACHE [None]
  - LOSS OF CONSCIOUSNESS [None]
